FAERS Safety Report 7416089-1 (Version None)
Quarter: 2011Q2

REPORT INFORMATION
  Report Type: 
  Country: None (occurrence: None)
  Receive Date: 20110414
  Receipt Date: 20110411
  Transmission Date: 20111010
  Serious: Yes (Death)
  Sender: FDA-Public Use
  Company Number: TN-ROCHE-770711

PATIENT
  Sex: Male
  Weight: 70 kg

DRUGS (2)
  1. RIBAVIRIN [Suspect]
     Indication: HEPATITIS C
     Route: 048
     Dates: start: 20100301
  2. PEGINTERFERON ALFA-2A [Suspect]
     Indication: HEPATITIS C
     Route: 058
     Dates: start: 20100301

REACTIONS (4)
  - IRRITABILITY [None]
  - HALLUCINATION [None]
  - THROMBOCYTOPENIA [None]
  - OESOPHAGEAL VARICES HAEMORRHAGE [None]
